FAERS Safety Report 15431676 (Version 1)
Quarter: 2018Q3

REPORT INFORMATION
  Report Type: Spontaneous
  Country: US (occurrence: US)
  Receive Date: 20180926
  Receipt Date: 20180926
  Transmission Date: 20181010
  Serious: No
  Sender: FDA-Public Use
  Company Number: US-TARO-2018TAR00571

PATIENT
  Sex: Female

DRUGS (2)
  1. DESONIDE OINTMENT USP 0.05% [Suspect]
     Active Substance: DESONIDE
     Indication: ALLERGY TO ANIMAL
     Dosage: UNK UNK, ONCE
     Route: 061
     Dates: start: 201805, end: 201805
  2. DESONIDE OINTMENT USP 0.05% [Suspect]
     Active Substance: DESONIDE
     Dosage: UNK

REACTIONS (2)
  - Sensory disturbance [Not Recovered/Not Resolved]
  - Medication error [Recovered/Resolved]

NARRATIVE: CASE EVENT DATE: 201805
